FAERS Safety Report 9651580 (Version 2)
Quarter: 2013Q4

REPORT INFORMATION
  Report Type: Spontaneous
  Country: US (occurrence: US)
  Receive Date: 20131029
  Receipt Date: 20131204
  Transmission Date: 20140711
  Serious: No
  Sender: FDA-Public Use
  Company Number: US-BIOGENIDEC-2013BI072760

PATIENT
  Age: 45 Year
  Sex: Female

DRUGS (6)
  1. TECFIDERA [Suspect]
     Indication: MULTIPLE SCLEROSIS
     Route: 048
     Dates: start: 20130626, end: 20130702
  2. TECFIDERA [Suspect]
     Indication: MULTIPLE SCLEROSIS
     Route: 048
     Dates: start: 20130703, end: 20131106
  3. RESTASIS EMU 0.05% [Concomitant]
  4. PROMETHAZINE [Concomitant]
  5. CARAFATE [Concomitant]
  6. NEXIUM [Concomitant]

REACTIONS (9)
  - Headache [Not Recovered/Not Resolved]
  - Arthralgia [Unknown]
  - Pancreatitis acute [Unknown]
  - Abdominal distension [Unknown]
  - Pain [Unknown]
  - Flushing [Unknown]
  - Abdominal pain upper [Unknown]
  - Diarrhoea [Not Recovered/Not Resolved]
  - Dyspepsia [Unknown]
